FAERS Safety Report 24316881 (Version 3)
Quarter: 2025Q1

REPORT INFORMATION
  Report Type: Spontaneous
  Country: US (occurrence: US)
  Receive Date: 20240913
  Receipt Date: 20250123
  Transmission Date: 20250409
  Serious: Yes (Other)
  Sender: SANOFI AVENTIS
  Company Number: US-SA-2024SA260360

PATIENT
  Sex: Male

DRUGS (3)
  1. DUPIXENT [Suspect]
     Active Substance: DUPILUMAB
     Indication: Eczema
     Route: 058
     Dates: start: 20231109, end: 20231109
  2. DUPIXENT [Suspect]
     Active Substance: DUPILUMAB
     Dosage: 300 MG, QOW
     Route: 058
     Dates: start: 20231123
  3. DUPIXENT [Suspect]
     Active Substance: DUPILUMAB
     Dosage: 300 MG, QOW
     Route: 058

REACTIONS (8)
  - Nephrolithiasis [Recovering/Resolving]
  - Blood urine present [Recovering/Resolving]
  - Condition aggravated [Recovering/Resolving]
  - Burning sensation [Recovering/Resolving]
  - Dysuria [Not Recovered/Not Resolved]
  - Influenza like illness [Unknown]
  - Urinary tract infection [Recovering/Resolving]
  - Pyrexia [Unknown]
